FAERS Safety Report 16951298 (Version 1)
Quarter: 2019Q4

REPORT INFORMATION
  Report Type: Spontaneous
  Country: US (occurrence: US)
  Receive Date: 20191023
  Receipt Date: 20191023
  Transmission Date: 20200122
  Serious: No
  Sender: FDA-Public Use
  Company Number: US-SUN PHARMACEUTICAL INDUSTRIES LTD-2019R1-219898

PATIENT
  Sex: Female

DRUGS (2)
  1. AMBRISENTAN [Suspect]
     Active Substance: AMBRISENTAN
     Indication: PRODUCT USED FOR UNKNOWN INDICATION
     Dosage: 10 MILLIGRAM, QD
     Route: 065
  2. TADALAFIL. [Concomitant]
     Active Substance: TADALAFIL
     Indication: PRODUCT USED FOR UNKNOWN INDICATION
     Dosage: UNK
     Route: 065

REACTIONS (15)
  - Blood pressure decreased [Unknown]
  - Diarrhoea [Unknown]
  - Heart rate increased [Unknown]
  - Joint swelling [Unknown]
  - Vision blurred [Unknown]
  - Dizziness [Unknown]
  - Anal sphincter atony [Unknown]
  - Swelling [Unknown]
  - Nasal congestion [Unknown]
  - Haemoglobin decreased [Unknown]
  - Peripheral swelling [Unknown]
  - Anaemia [Unknown]
  - Headache [Unknown]
  - Myalgia [Unknown]
  - Ear congestion [Unknown]

NARRATIVE: CASE EVENT DATE: 2019
